FAERS Safety Report 6773954-6 (Version None)
Quarter: 2010Q2

REPORT INFORMATION
  Report Type: 
  Country: None (occurrence: None)
  Receive Date: 20100617
  Receipt Date: 20100604
  Transmission Date: 20101027
  Serious: Yes (Other)
  Sender: FDA-Public Use
  Company Number: PHHY2010US38368

PATIENT
  Sex: Male
  Weight: 129.25 kg

DRUGS (1)
  1. GLEEVEC [Suspect]
     Indication: CHRONIC MYELOID LEUKAEMIA
     Dosage: 400 MG
     Route: 048
     Dates: start: 20100526

REACTIONS (4)
  - HEADACHE [None]
  - MIGRAINE [None]
  - MUSCLE SPASMS [None]
  - TREMOR [None]
